FAERS Safety Report 10410137 (Version 1)
Quarter: 2014Q3

REPORT INFORMATION
  Report Type: Spontaneous
  Country: US (occurrence: US)
  Receive Date: 20140826
  Receipt Date: 20140826
  Transmission Date: 20150326
  Serious: Yes (Hospitalization, Other)
  Sender: FDA-Public Use
  Company Number: US-BRISTOL-MYERS SQUIBB COMPANY-21303813

PATIENT
  Age: 21 Year
  Sex: Male

DRUGS (6)
  1. MYCOPHENOLATE MOFETIL. [Concomitant]
     Active Substance: MYCOPHENOLATE MOFETIL
  2. SORAFENIB [Concomitant]
     Active Substance: SORAFENIB
  3. HYDREA [Suspect]
     Active Substance: HYDROXYUREA
     Indication: WHITE BLOOD CELL COUNT INCREASED
     Dosage: 1G:3/DAY:25MAR14-27MAR14(3 DAYS)?UNK:4APR14
     Route: 065
     Dates: start: 20140325
  4. VANCOMYCIN [Suspect]
     Active Substance: VANCOMYCIN
     Indication: SEPTIC SHOCK
     Route: 042
     Dates: end: 20140405
  5. PROGRAF [Suspect]
     Active Substance: TACROLIMUS\TACROLIMUS ANHYDROUS
     Indication: STEM CELL TRANSPLANT
     Dosage: IV: 04 TO 05APR2014
     Route: 048
     Dates: end: 20140404
  6. ACYCLOVIR. [Suspect]
     Active Substance: ACYCLOVIR
     Dosage: IV: 04TH TO 05APR
     Route: 048
     Dates: end: 20140404

REACTIONS (5)
  - Renal failure acute [Unknown]
  - Immunosuppressant drug level decreased [Unknown]
  - Liver function test abnormal [Recovering/Resolving]
  - Mucosal inflammation [Recovering/Resolving]
  - Off label use [Unknown]

NARRATIVE: CASE EVENT DATE: 20140325
